FAERS Safety Report 16356870 (Version 2)
Quarter: 2019Q2

REPORT INFORMATION
  Report Type: Report from Study
  Country: AU (occurrence: AU)
  Receive Date: 20190527
  Receipt Date: 20190621
  Transmission Date: 20190711
  Serious: Yes (Other)
  Sender: FDA-Public Use
  Company Number: AU-GLAXOSMITHKLINE-AU2019GSK089997

PATIENT
  Sex: Female

DRUGS (1)
  1. MEPOLIZUMAB [Suspect]
     Active Substance: MEPOLIZUMAB
     Indication: ASTHMA
     Dosage: 100 MG, UNK
     Route: 058
     Dates: start: 20170718

REACTIONS (6)
  - Swelling face [Recovered/Resolved]
  - Rash erythematous [Not Recovered/Not Resolved]
  - Pseudomonas infection [Unknown]
  - Swelling of eyelid [Recovered/Resolved]
  - Rash [Not Recovered/Not Resolved]
  - Lip swelling [Recovered/Resolved]
